FAERS Safety Report 24109808 (Version 1)
Quarter: 2024Q3

REPORT INFORMATION
  Report Type: Spontaneous
  Country: US (occurrence: None)
  Receive Date: 20240717
  Receipt Date: 20240717
  Transmission Date: 20241016
  Serious: Yes (Other)
  Sender: Public
  Company Number: None

PATIENT
  Age: 61 Year
  Sex: Male
  Weight: 139.5 kg

DRUGS (10)
  1. DUPIXENT [Suspect]
     Active Substance: DUPILUMAB
     Indication: Dermatitis atopic
     Dosage: OTHER FREQUENCY : EVERY 2 WEEKS;?
     Route: 058
  2. SIMVASTATIN [Concomitant]
  3. COLCHICINE [Concomitant]
  4. OMEPRAZOLE [Concomitant]
  5. Lisinopril-HCTZ [Concomitant]
  6. PROPRANOLOL [Concomitant]
  7. TADALAFIL [Concomitant]
  8. Calcium-Mag-ZN +Vit D [Concomitant]
  9. Fish Oil 1200mg [Concomitant]
  10. Super B complex [Concomitant]

REACTIONS (8)
  - Influenza [None]
  - Abdominal pain upper [None]
  - Nausea [None]
  - Tinnitus [None]
  - Dizziness [None]
  - Cold sweat [None]
  - Paraesthesia [None]
  - Rash [None]

NARRATIVE: CASE EVENT DATE: 20240712
